FAERS Safety Report 6039450-9 (Version None)
Quarter: 2009Q1

REPORT INFORMATION
  Report Type: 
  Country: None (occurrence: None)
  Receive Date: 20090114
  Receipt Date: 20090102
  Transmission Date: 20090719
  Serious: Yes (Hospitalization)
  Sender: FDA-Public Use
  Company Number: 430032K08USA

PATIENT
  Age: 50 Year
  Sex: Female
  Weight: 73 kg

DRUGS (4)
  1. NOVANTRONE [Suspect]
     Indication: MULTIPLE SCLEROSIS
     Dosage: INTRAVENOUS (NOT OTHERWISE SPECIFIED)
     Route: 042
     Dates: start: 20080229, end: 20081001
  2. BACLOFEN [Concomitant]
  3. PROVIGIL [Concomitant]
  4. ZOLOFT [Concomitant]

REACTIONS (2)
  - ANKLE FRACTURE [None]
  - FALL [None]
